FAERS Safety Report 9119550 (Version 1)
Quarter: 2013Q1

REPORT INFORMATION
  Report Type: Report from Study
  Country: JP (occurrence: JP)
  Receive Date: 20130226
  Receipt Date: 20130226
  Transmission Date: 20140127
  Serious: Yes (Death)
  Sender: FDA-Public Use
  Company Number: JP-EISAI INC-E7389-01823-SPO-JP

PATIENT
  Age: 65 Year
  Sex: Female
  Weight: 42 kg

DRUGS (7)
  1. HALAVEN [Suspect]
     Indication: BREAST CANCER RECURRENT
     Route: 041
     Dates: start: 20111004, end: 20111011
  2. HALAVEN [Suspect]
     Indication: METASTASES TO LIVER
     Route: 041
     Dates: start: 20110913, end: 20110920
  3. HALAVEN [Suspect]
     Indication: METASTASES TO LYMPH NODES
  4. HALAVEN [Suspect]
     Indication: METASTASES TO LUNG
  5. HALAVEN [Suspect]
     Indication: METASTASES TO BONE
  6. HALAVEN [Suspect]
     Indication: METASTASES TO CENTRAL NERVOUS SYSTEM
  7. LUPRAC [Concomitant]
     Indication: BREAST CANCER RECURRENT
     Route: 048

REACTIONS (6)
  - Malignant neoplasm progression [Fatal]
  - Oedema peripheral [Unknown]
  - Neutropenia [Recovered/Resolved]
  - Leukopenia [Recovered/Resolved]
  - Lymphopenia [Recovering/Resolving]
  - Stomatitis [Unknown]
